FAERS Safety Report 15730175 (Version 2)
Quarter: 2019Q1

REPORT INFORMATION
  Report Type: Report from Study
  Country: TN (occurrence: TN)
  Receive Date: 20181217
  Receipt Date: 20190121
  Transmission Date: 20190417
  Serious: Yes (Hospitalization)
  Sender: FDA-Public Use
  Company Number: TN-SAKK-2018SA337035AA

PATIENT
  Age: 55 Year
  Sex: Male

DRUGS (1)
  1. INSULIN GLARGINE [Suspect]
     Active Substance: INSULIN GLARGINE
     Indication: DIABETES MELLITUS
     Dosage: 1 DF, QD
     Dates: start: 20180511, end: 201811

REACTIONS (3)
  - Gangrene [Not Recovered/Not Resolved]
  - Gangrene [Unknown]
  - Pain [Unknown]

NARRATIVE: CASE EVENT DATE: 20181203
